FAERS Safety Report 9707311 (Version 1)
Quarter: 2013Q4

REPORT INFORMATION
  Report Type: Spontaneous
  Country: US (occurrence: US)
  Receive Date: 20131125
  Receipt Date: 20131125
  Transmission Date: 20140711
  Serious: No
  Sender: FDA-Public Use
  Company Number: US-GLAXOSMITHKLINE-A1005234A

PATIENT
  Age: 60 Year
  Sex: Female

DRUGS (4)
  1. FLOVENT [Suspect]
     Indication: RALES
     Dosage: 2PUFF TWICE PER DAY
     Route: 055
     Dates: start: 20121211
  2. RYTHMOL SR [Suspect]
     Indication: ARRHYTHMIA
     Dosage: 225MG TWICE PER DAY
     Route: 048
  3. SYNTHROID [Concomitant]
  4. LOSARTAN WITH HYDROCHLOROTHIAZIDE [Concomitant]

REACTIONS (2)
  - Heart rate irregular [Recovered/Resolved]
  - Heart rate irregular [Recovered/Resolved]
